FAERS Safety Report 5729177-2 (Version None)
Quarter: 2008Q2

REPORT INFORMATION
  Report Type: 
  Country: None (occurrence: None)
  Receive Date: 20080506
  Receipt Date: 20080424
  Transmission Date: 20081010
  Serious: Yes (Death)
  Sender: FDA-Public Use
  Company Number: JP-BRISTOL-MYERS SQUIBB COMPANY-14173959

PATIENT
  Age: 59 Year
  Sex: Female

DRUGS (6)
  1. ENDOXAN [Suspect]
     Indication: BREAST CANCER
     Route: 065
  2. FLUOROURACIL [Suspect]
     Indication: BREAST CANCER
     Route: 065
  3. FARMORUBICIN [Suspect]
     Indication: BREAST CANCER
     Route: 065
  4. NEUTROGIN [Suspect]
     Indication: WHITE BLOOD CELL COUNT DECREASED
     Route: 058
  5. GLYSENNID [Concomitant]
  6. MYSLEE [Concomitant]

REACTIONS (2)
  - COMPLETED SUICIDE [None]
  - DEPRESSION [None]
